FAERS Safety Report 4478906-7 (Version None)
Quarter: 2004Q4

REPORT INFORMATION
  Report Type: 
  Country: None (occurrence: None)
  Receive Date: 20041018
  Receipt Date: 20041004
  Transmission Date: 20050328
  Serious: Yes (Death)
  Sender: FDA-Public Use
  Company Number: 2004S1002615

PATIENT
  Age: 45 Year
  Sex: Male

DRUGS (5)
  1. CLOZAPINE TABLETS 25 MG MYLAN [Suspect]
     Indication: SCHIZOPHRENIA, PARANOID TYPE
     Dosage: 25 MG Q HS, ORAL
     Route: 048
     Dates: start: 20030801, end: 20040801
  2. CLOZAPINE [Suspect]
     Indication: SCHIZOPHRENIA, PARANOID TYPE
     Dosage: 600 MG Q HS, ORAL
     Route: 048
     Dates: start: 20031101, end: 20040801
  3. DIVALPROEX SODIUM [Concomitant]
  4. HALOPERIDOL DECONOATE [Concomitant]
  5. OXYBUTYNIN [Concomitant]

REACTIONS (2)
  - DYSPNOEA [None]
  - RESPIRATORY ARREST [None]
